FAERS Safety Report 22145679 (Version 1)
Quarter: 2023Q1

REPORT INFORMATION
  Report Type: Spontaneous
  Country: CH (occurrence: CH)
  Receive Date: 20230328
  Receipt Date: 20230328
  Transmission Date: 20230418
  Serious: Yes (Hospitalization, Other)
  Sender: FDA-Public Use
  Company Number: None

PATIENT

DRUGS (3)
  1. WELLBUTRIN [Suspect]
     Active Substance: BUPROPION HYDROCHLORIDE
     Indication: Depression
     Dosage: UNK UNK, QD
     Route: 048
     Dates: start: 202303
  2. BUTETAMATE CITRATE\CODEINE HYDROCHLORIDE\DIPHENHYDRAMINE HYDROCHLORIDE [Suspect]
     Active Substance: BUTETAMATE CITRATE\CODEINE HYDROCHLORIDE\DIPHENHYDRAMINE HYDROCHLORIDE
     Indication: Substance use
     Dosage: 240 ML (IN TOTAL)
     Route: 048
     Dates: start: 20230316, end: 20230316
  3. VENTOLIN [Concomitant]
     Active Substance: ALBUTEROL SULFATE
     Indication: Product used for unknown indication
     Dosage: UNK
     Route: 055

REACTIONS (2)
  - Generalised tonic-clonic seizure [Recovered/Resolved]
  - Intentional product misuse [Unknown]

NARRATIVE: CASE EVENT DATE: 20230316
